FAERS Safety Report 17893306 (Version 1)
Quarter: 2020Q2

REPORT INFORMATION
  Report Type: Spontaneous
  Country: US (occurrence: US)
  Receive Date: 20200614
  Receipt Date: 20200614
  Transmission Date: 20200714
  Serious: No
  Sender: FDA-Public Use
  Company Number: US-CELGENEUS-USA-20200601830

PATIENT
  Age: 71 Year
  Sex: Female

DRUGS (6)
  1. PROCRIT [Concomitant]
     Active Substance: ERYTHROPOIETIN
     Indication: PRODUCT USED FOR UNKNOWN INDICATION
     Route: 065
  2. HYDREA [Concomitant]
     Active Substance: HYDROXYUREA
     Indication: PRODUCT USED FOR UNKNOWN INDICATION
     Dosage: 1 AND ALTERNATE 1.5 GRAMS TWICE A WEEK
     Route: 065
  3. LUSPATECEPT-AAMT [Concomitant]
     Dosage: 1MG/KG
     Route: 065
     Dates: start: 20200529
  4. LUSPATECEPT-AAMT [Concomitant]
     Indication: MYELODYSPLASTIC SYNDROME
     Dosage: 1MG/KG
     Route: 065
     Dates: start: 20200508
  5. LENALIDOMIDE [Suspect]
     Active Substance: LENALIDOMIDE
     Indication: MYELODYSPLASTIC SYNDROME
     Dosage: 10 MILLIGRAM
     Route: 048
     Dates: start: 201912
  6. JAKAFI [Concomitant]
     Active Substance: RUXOLITINIB
     Indication: PRODUCT USED FOR UNKNOWN INDICATION
     Route: 065

REACTIONS (1)
  - Thrombocytosis [Not Recovered/Not Resolved]

NARRATIVE: CASE EVENT DATE: 20200513
